FAERS Safety Report 12688467 (Version 2)
Quarter: 2016Q3

REPORT INFORMATION
  Report Type: Report from Study
  Country: CA (occurrence: CA)
  Receive Date: 20160825
  Receipt Date: 20160826
  Transmission Date: 20161109
  Serious: Yes (Other)
  Sender: FDA-Public Use
  Company Number: CA-ABBVIE-15K-028-1453790-00

PATIENT
  Sex: Female
  Weight: 79.45 kg

DRUGS (4)
  1. HUMIRA [Suspect]
     Active Substance: ADALIMUMAB
     Indication: CROHN^S DISEASE
     Route: 058
     Dates: start: 20141224, end: 20150819
  2. HUMIRA [Suspect]
     Active Substance: ADALIMUMAB
     Route: 058
     Dates: start: 201603
  3. HUMIRA [Suspect]
     Active Substance: ADALIMUMAB
     Route: 058
     Dates: start: 2016, end: 2016
  4. CORTISONE [Concomitant]
     Active Substance: CORTISONE\HYDROCORTISONE
     Indication: PAIN
     Route: 048
     Dates: start: 2001

REACTIONS (21)
  - Gait disturbance [Recovered/Resolved]
  - Joint warmth [Recovered/Resolved]
  - Diarrhoea [Recovered/Resolved]
  - Abdominal pain [Recovered/Resolved]
  - Myalgia [Recovered/Resolved]
  - Constipation [Not Recovered/Not Resolved]
  - Pain [Recovered/Resolved]
  - Insomnia [Not Recovered/Not Resolved]
  - Paraesthesia [Recovered/Resolved]
  - Night sweats [Recovered/Resolved]
  - Nausea [Recovered/Resolved]
  - Sinus disorder [Recovered/Resolved]
  - Rash erythematous [Recovered/Resolved]
  - Arthralgia [Not Recovered/Not Resolved]
  - Back pain [Recovered/Resolved]
  - Vision blurred [Recovered/Resolved]
  - Bronchitis [Recovered/Resolved]
  - Dry skin [Recovered/Resolved]
  - Polyp [Recovered/Resolved]
  - Heart rate irregular [Recovered/Resolved]
  - Joint swelling [Recovered/Resolved]

NARRATIVE: CASE EVENT DATE: 2015
